FAERS Safety Report 24179375 (Version 1)
Quarter: 2024Q3

REPORT INFORMATION
  Report Type: Spontaneous
  Country: US (occurrence: US)
  Receive Date: 20240806
  Receipt Date: 20240806
  Transmission Date: 20241017
  Serious: No
  Sender: BOEHRINGER INGELHEIM
  Company Number: US-BoehringerIngelheim-2024-BI-043932

PATIENT
  Sex: Male

DRUGS (1)
  1. MOBIC [Suspect]
     Active Substance: MELOXICAM
     Indication: Arthritis
     Dates: start: 2014

REACTIONS (7)
  - Chronic kidney disease [Unknown]
  - COVID-19 [Unknown]
  - COVID-19 [Unknown]
  - Blood test abnormal [Unknown]
  - Nasal abscess [Unknown]
  - Rash [Unknown]
  - Herpes zoster [Unknown]

NARRATIVE: CASE EVENT DATE: 20240101
